FAERS Safety Report 18896332 (Version 1)
Quarter: 2021Q1

REPORT INFORMATION
  Report Type: Spontaneous
  Country: CN (occurrence: CN)
  Receive Date: 20210215
  Receipt Date: 20210215
  Transmission Date: 20210420
  Serious: Yes (Hospitalization, Other)
  Sender: FDA-Public Use
  Company Number: CN-PFIZER INC-2021131958

PATIENT
  Age: 79 Year
  Sex: Female

DRUGS (2)
  1. ATORVASTATIN CALCIUM. [Suspect]
     Active Substance: ATORVASTATIN CALCIUM
     Indication: THERAPEUTIC PROCEDURE
     Dosage: 20 MG, 1X/DAY
     Route: 048
     Dates: start: 20201217, end: 20201229
  2. IDEBENONE [Suspect]
     Active Substance: IDEBENONE
     Indication: THERAPEUTIC PROCEDURE
     Dosage: 30 MG, 3X/DAY
     Route: 048
     Dates: start: 20201217, end: 20201229

REACTIONS (2)
  - Hepatic function abnormal [Recovered/Resolved]
  - C-reactive protein increased [Unknown]

NARRATIVE: CASE EVENT DATE: 20201218
